FAERS Safety Report 14184543 (Version 1)
Quarter: 2017Q4

REPORT INFORMATION
  Report Type: Spontaneous
  Country: FR (occurrence: FR)
  Receive Date: 20171113
  Receipt Date: 20171113
  Transmission Date: 20180321
  Serious: Yes (Other)
  Sender: FDA-Public Use
  Company Number: FR-ABBVIE-17P-056-2162394-00

PATIENT
  Age: 36 Year
  Sex: Female

DRUGS (2)
  1. MICROPAKINE L.P. [Suspect]
     Active Substance: VALPROATE SODIUM
     Indication: PRODUCT USED FOR UNKNOWN INDICATION
     Route: 048
  2. MICROPAKINE L.P. [Suspect]
     Active Substance: VALPROATE SODIUM
     Route: 048

REACTIONS (3)
  - Drug level below therapeutic [Unknown]
  - Seizure [Unknown]
  - Abnormal faeces [Unknown]
